FAERS Safety Report 18874127 (Version 1)
Quarter: 2021Q1

REPORT INFORMATION
  Report Type: Spontaneous
  Country: US (occurrence: US)
  Receive Date: 20210210
  Receipt Date: 20210210
  Transmission Date: 20210420
  Serious: No
  Sender: FDA-Public Use
  Company Number: US-TEVA-2021-US-1879140

PATIENT
  Sex: Female

DRUGS (1)
  1. METOPROLOL. [Suspect]
     Active Substance: METOPROLOL
     Route: 065
     Dates: start: 2018, end: 2018

REACTIONS (2)
  - Rash [Unknown]
  - Headache [Unknown]

NARRATIVE: CASE EVENT DATE: 2018
